FAERS Safety Report 9943584 (Version 2)
Quarter: 2014Q1

REPORT INFORMATION
  Report Type: Report from Study
  Country: US (occurrence: US)
  Receive Date: 20140303
  Receipt Date: 20140303
  Transmission Date: 20141002
  Serious: No
  Sender: FDA-Public Use
  Company Number: US-ABBVIE-12P-163-1024634-00

PATIENT
  Age: 50 Year
  Sex: Female

DRUGS (4)
  1. HUMIRA [Suspect]
     Indication: PSORIASIS
     Dates: start: 20121101, end: 20121122
  2. TAMOXIFEN [Concomitant]
     Indication: PROPHYLAXIS
     Dosage: DAILY
  3. CRESTOR [Concomitant]
     Indication: BLOOD CHOLESTEROL
  4. AMLODIPINE [Concomitant]
     Indication: BLOOD PRESSURE

REACTIONS (2)
  - Fatigue [Recovering/Resolving]
  - Diarrhoea [Recovered/Resolved]
